FAERS Safety Report 12900731 (Version 2)
Quarter: 2016Q4

REPORT INFORMATION
  Report Type: Spontaneous
  Country: US (occurrence: US)
  Receive Date: 20161101
  Receipt Date: 20161207
  Transmission Date: 20170207
  Serious: Yes (Death, Other)
  Sender: FDA-Public Use
  Company Number: US-009507513-1610USA013727

PATIENT
  Sex: Male

DRUGS (1)
  1. NOXAFIL [Suspect]
     Active Substance: POSACONAZOLE
     Indication: INFECTION
     Dosage: STRENGTH: 18 MG/ML , ROUTE OF ADMINISTRATION: INJECTION, UNK
     Route: 051
     Dates: start: 201609

REACTIONS (2)
  - Leukaemia [Unknown]
  - Malaise [Fatal]

NARRATIVE: CASE EVENT DATE: 2016
